FAERS Safety Report 18500521 (Version 1)
Quarter: 2020Q4

REPORT INFORMATION
  Report Type: Report from Study
  Country: US (occurrence: US)
  Receive Date: 20201113
  Receipt Date: 20201113
  Transmission Date: 20210114
  Serious: Yes (Hospitalization, Other)
  Sender: FDA-Public Use
  Company Number: US-NEXUS PHARMA-000020

PATIENT
  Age: 52 Year

DRUGS (1)
  1. ARSENIC [Suspect]
     Active Substance: ARSENIC
     Indication: ACUTE PROMYELOCYTIC LEUKAEMIA

REACTIONS (2)
  - Herpes zoster [Unknown]
  - Meningoencephalitis herpetic [Unknown]
